FAERS Safety Report 15617165 (Version 2)
Quarter: 2019Q2

REPORT INFORMATION
  Report Type: Spontaneous
  Country: US (occurrence: US)
  Receive Date: 20181114
  Receipt Date: 20190530
  Transmission Date: 20190711
  Serious: Yes (Other)
  Sender: FDA-Public Use
  Company Number: US-ASTRAZENECA-2018SF46212

PATIENT
  Age: 55 Year
  Sex: Female
  Weight: 86.2 kg

DRUGS (19)
  1. NEXIUM [Suspect]
     Active Substance: ESOMEPRAZOLE MAGNESIUM
     Indication: DYSPEPSIA
     Dosage: 40.0MG UNKNOWN
     Route: 048
     Dates: start: 20100928, end: 20140711
  2. FLEXERIL [Concomitant]
     Active Substance: CYCLOBENZAPRINE HYDROCHLORIDE
  3. CYCLOBENZAPRINE. [Concomitant]
     Active Substance: CYCLOBENZAPRINE
  4. FUROSEMIDE. [Concomitant]
     Active Substance: FUROSEMIDE
  5. PANTOPRAZOLE [Suspect]
     Active Substance: PANTOPRAZOLE
     Indication: DYSPEPSIA
     Dosage: 40.0MG UNKNOWN
     Route: 065
  6. ZADITOR [Concomitant]
     Active Substance: KETOTIFEN FUMARATE
  7. MOTRIN [Concomitant]
     Active Substance: IBUPROFEN
  8. RANITIDINE. [Concomitant]
     Active Substance: RANITIDINE
  9. ONDANSETRON [Concomitant]
     Active Substance: ONDANSETRON
  10. EPIPEN [Concomitant]
     Active Substance: EPINEPHRINE
  11. TYLENOL [Concomitant]
     Active Substance: ACETAMINOPHEN
  12. GEMFIBROZIL. [Concomitant]
     Active Substance: GEMFIBROZIL
  13. AMOXIL [Concomitant]
     Active Substance: AMOXICILLIN
  14. VERAPAMIL [Concomitant]
     Active Substance: VERAPAMIL HYDROCHLORIDE
  15. VERELAN [Concomitant]
     Active Substance: VERAPAMIL HYDROCHLORIDE
  16. PREDNISONE. [Concomitant]
     Active Substance: PREDNISONE
  17. SINGULAIR [Concomitant]
     Active Substance: MONTELUKAST SODIUM
  18. ZANTAC [Concomitant]
     Active Substance: RANITIDINE HYDROCHLORIDE
  19. ALBUTEROL. [Concomitant]
     Active Substance: ALBUTEROL

REACTIONS (5)
  - Renal failure [Not Recovered/Not Resolved]
  - Depression [Unknown]
  - Chronic kidney disease [Not Recovered/Not Resolved]
  - Tubulointerstitial nephritis [Not Recovered/Not Resolved]
  - Acute kidney injury [Unknown]

NARRATIVE: CASE EVENT DATE: 2013
